FAERS Safety Report 24285504 (Version 1)
Quarter: 2024Q3

REPORT INFORMATION
  Report Type: Spontaneous
  Country: US (occurrence: None)
  Receive Date: 20240902
  Receipt Date: 20240902
  Transmission Date: 20241017
  Serious: Yes (Hospitalization)
  Sender: Public
  Company Number: None

PATIENT
  Age: 79 Year
  Sex: Male

DRUGS (5)
  1. IXINITY [Suspect]
     Active Substance: COAGULATION FACTOR IX RECOMBINANT HUMAN
     Indication: Factor IX deficiency
     Dosage: OTHER STRENGTH : 1500??OTHER QUANTITY : 3500-4200- OR 5600-7000?FREQUENCY : AS NEEDED?
     Route: 042
     Dates: start: 202312
  2. BENEFIX INJ [Concomitant]
  3. NORAML SALINE FLUSH [Concomitant]
  4. HEPARIN L/L FLUSH [Concomitant]
  5. BENEFIX [Concomitant]
     Active Substance: COAGULATION FACTOR IX RECOMBINANT HUMAN\ISOPROPYL ALCOHOL

REACTIONS (1)
  - Cerebral haemorrhage [None]

NARRATIVE: CASE EVENT DATE: 20240802
